FAERS Safety Report 24984815 (Version 1)
Quarter: 2025Q1

REPORT INFORMATION
  Report Type: Spontaneous
  Country: US (occurrence: US)
  Receive Date: 20250219
  Receipt Date: 20250219
  Transmission Date: 20250408
  Serious: Yes (Hospitalization)
  Sender: HIKMA
  Company Number: US-MLMSERVICE-20250203-PI389296-00270-1

PATIENT
  Age: 75 Year
  Sex: Female

DRUGS (3)
  1. METHYLPREDNISOLONE [Suspect]
     Active Substance: METHYLPREDNISOLONE
     Indication: Giant cell arteritis
     Dosage: 1000 MILLIGRAM, QD,ON HOSPITAL DAY 2, 3 AND 4
     Route: 042
  2. METHYLPREDNISOLONE [Suspect]
     Active Substance: METHYLPREDNISOLONE
     Indication: Evidence based treatment
     Dosage: 250 MILLIGRAM, Q6H, 750 MG ON HOSPITAL DAY 1
     Route: 042
  3. METHYLPREDNISOLONE [Suspect]
     Active Substance: METHYLPREDNISOLONE
     Dosage: 314 MILLIGRAM, QD
     Route: 042

REACTIONS (1)
  - Hypothermia [Recovered/Resolved]
